FAERS Safety Report 8965889 (Version 1)
Quarter: 2012Q4

REPORT INFORMATION
  Report Type: 
  Country: FR (occurrence: FR)
  Receive Date: 20121217
  Receipt Date: 20121217
  Transmission Date: 20130627
  Serious: Yes (Death, Other)
  Sender: FDA-Public Use
  Company Number: PHHY2012FR114935

PATIENT
  Age: 35 Year
  Sex: Male

DRUGS (4)
  1. BASILIXIMAB [Suspect]
     Indication: LUNG TRANSPLANT
     Dosage: UNK UKN, UNK
  2. METHYLPREDNISOLONE [Suspect]
     Indication: IMMUNOSUPPRESSION
     Dosage: UNK UKN, UNK
  3. TACROLIMUS [Suspect]
     Indication: IMMUNOSUPPRESSION
     Dosage: UNK UKN, UNK
  4. MYCOPHENOLATE MOFETIL [Suspect]
     Indication: IMMUNOSUPPRESSION
     Dosage: UNK UKN, UNK

REACTIONS (17)
  - Aspergillosis [Fatal]
  - Wound dehiscence [Fatal]
  - Trichosporon infection [Fatal]
  - Respiratory disorder [Fatal]
  - Subcutaneous emphysema [Fatal]
  - Bronchopleural fistula [Fatal]
  - Acute hepatic failure [Unknown]
  - Ascites [Unknown]
  - Amyloidosis [Unknown]
  - Fungal infection [Unknown]
  - Fungal abscess central nervous system [Unknown]
  - Coma [Unknown]
  - Quadriplegia [Unknown]
  - Somnolence [Unknown]
  - Neurological symptom [Unknown]
  - Arteritis infective [Unknown]
  - Pseudomonas infection [Unknown]
